FAERS Safety Report 4498444-5 (Version None)
Quarter: 2004Q4

REPORT INFORMATION
  Report Type: 
  Country: None (occurrence: None)
  Receive Date: 20041105
  Receipt Date: 20041029
  Transmission Date: 20050328
  Serious: Yes (Other)
  Sender: FDA-Public Use
  Company Number: 028-20785-03100778

PATIENT
  Age: 77 Year
  Sex: Female

DRUGS (14)
  1. THALOMID [Suspect]
     Indication: MULTIPLE MYELOMA
     Dosage: SEE IMAGE
     Route: 048
     Dates: start: 20030101, end: 20030101
  2. THALOMID [Suspect]
     Indication: MULTIPLE MYELOMA
     Dosage: SEE IMAGE
     Route: 048
     Dates: start: 20031001, end: 20040701
  3. THALOMID [Suspect]
     Indication: MULTIPLE MYELOMA
     Dosage: SEE IMAGE
     Route: 048
     Dates: start: 20040701
  4. THALOMID [Suspect]
  5. THALOMID [Suspect]
  6. THALOMID [Suspect]
  7. SYNTHROID [Concomitant]
  8. FOSAMAX [Concomitant]
  9. VITAMIN B12 [Concomitant]
  10. ERYTHROPOIETIN (ERYTHROPOIETIN) [Concomitant]
  11. PAMIDRONATE DISODIUM [Concomitant]
  12. QUININE (QUININE) [Concomitant]
  13. LASIX [Concomitant]
  14. LACTULOSE [Concomitant]

REACTIONS (8)
  - CONSTIPATION [None]
  - DIZZINESS [None]
  - HIP FRACTURE [None]
  - NEUROPATHY PERIPHERAL [None]
  - RASH [None]
  - SOMNOLENCE [None]
  - UPPER LIMB FRACTURE [None]
  - VIRAL INFECTION [None]
